FAERS Safety Report 9252929 (Version 1)
Quarter: 2013Q1

REPORT INFORMATION
  Report Type: Spontaneous
  Country: US (occurrence: None)
  Receive Date: 20130305
  Receipt Date: 20130305
  Transmission Date: 20140127
  Serious: Yes (Other)
  Sender: FDA-Public Use
  Company Number: 163-21880-12081838

PATIENT
  Age: 67 Year
  Sex: Female

DRUGS (14)
  1. REVLIMID [Suspect]
     Indication: PLASMA CELL MYELOMA
     Route: 048
     Dates: start: 200902, end: 201210
  2. GLIPIZIDE (GLIPIZIDE) [Concomitant]
  3. ALBUTEROL (SALBUTAMOL) [Concomitant]
  4. LISINOPRIL (LISINOPRIL) [Concomitant]
  5. METFORMIN (METFORMIN) [Concomitant]
  6. HYDROCODONE / ACETAMINOPHEN (REMEDEINE) [Concomitant]
  7. PROAIR (FLUTICASONE PROPIONATE) [Concomitant]
  8. AMOXICILLIN (AMOXICILLIN) [Concomitant]
  9. VITAMIN D3 (COLECALCIFEROL) [Concomitant]
  10. CYCLOBENZAPRINE (CYCLOBENZAPRINE) [Concomitant]
  11. VITAMIN B12 (CYANOCOBALAMIN) [Concomitant]
  12. ASPIRIN (ACETYLSALICYLIC ACID) [Concomitant]
  13. SIMVASTATIN (SIMVASTATIN) [Concomitant]
  14. VICODIN (VICODIN) [Concomitant]

REACTIONS (2)
  - Plasma cell myeloma [None]
  - White blood cell count decreased [None]
